FAERS Safety Report 4842569-9 (Version None)
Quarter: 2005Q4

REPORT INFORMATION
  Report Type: 
  Country: None (occurrence: None)
  Receive Date: 20051129
  Receipt Date: 20051122
  Transmission Date: 20060501
  Serious: Yes (Death, Other)
  Sender: FDA-Public Use
  Company Number: 163-20785-05110075

PATIENT
  Age: 68 Year
  Sex: Male

DRUGS (5)
  1. THALOMID [Suspect]
     Indication: RENAL CANCER METASTATIC
     Dosage: 200 MG, QHS, ORAL
     Route: 048
     Dates: start: 20041209, end: 20050915
  2. OXALIPLATIN (OXALIPLATIN) [Concomitant]
  3. FLUOROURACIL [Concomitant]
  4. VINBLASTINE (VINBLASTINE) [Concomitant]
  5. CISPLATIN [Concomitant]

REACTIONS (3)
  - DISEASE PROGRESSION [None]
  - GASTRIC NEOPLASM [None]
  - GASTROINTESTINAL HAEMORRHAGE [None]
